FAERS Safety Report 4502666-4 (Version None)
Quarter: 2004Q3

REPORT INFORMATION
  Report Type: 
  Country: None (occurrence: None)
  Receive Date: 20040928
  Receipt Date: 20040607
  Transmission Date: 20050211
  Serious: No
  Sender: FDA-Public Use
  Company Number: 04P-163-0263105-00

PATIENT
  Age: 78 Year
  Sex: Female
  Weight: 90.7194 kg

DRUGS (9)
  1. HUMIRA [Suspect]
     Indication: RHEUMATOID ARTHRITIS
     Dosage: 40 MG, SUBCUTANEOUS
     Route: 058
     Dates: start: 20040430
  2. FUROSEMIDE [Concomitant]
  3. LOTREL [Concomitant]
  4. RAMIPRIL [Concomitant]
  5. METFORMIN HCL [Concomitant]
  6. ARTHROTEC [Concomitant]
  7. INSULIN [Concomitant]
  8. ACETAMINOPHEN [Concomitant]
  9. EYE DROPS [Concomitant]

REACTIONS (4)
  - COUGH [None]
  - DIARRHOEA [None]
  - INSOMNIA [None]
  - NAUSEA [None]
